FAERS Safety Report 10016007 (Version 6)
Quarter: 2015Q3

REPORT INFORMATION
  Report Type: Spontaneous
  Country: US (occurrence: US)
  Receive Date: 20140317
  Receipt Date: 20150706
  Transmission Date: 20151125
  Serious: Yes (Hospitalization, Other)
  Sender: FDA-Public Use
  Company Number: US-009507513-1403USA003811

PATIENT
  Sex: Male
  Weight: 81 kg

DRUGS (3)
  1. PROSCAR [Suspect]
     Active Substance: FINASTERIDE
     Indication: PROSTATOMEGALY
     Dosage: 5 MG, UNK
     Route: 048
     Dates: start: 20030813
  2. PROSCAR [Suspect]
     Active Substance: FINASTERIDE
     Dosage: UNK
     Dates: start: 2002
  3. FINASTERIDE. [Suspect]
     Active Substance: FINASTERIDE
     Indication: PROSTATOMEGALY
     Dosage: 5 MG, UNK
     Route: 048
     Dates: start: 2006, end: 2010

REACTIONS (24)
  - Radiotherapy to prostate [Unknown]
  - Neoplasm prostate [Unknown]
  - Urinary hesitation [Unknown]
  - Surgery [Unknown]
  - Anxiety [Unknown]
  - Hypercholesterolaemia [Unknown]
  - Cataract operation complication [Unknown]
  - Nocturia [Unknown]
  - Type 2 diabetes mellitus [Unknown]
  - Cataract operation [Unknown]
  - Arterial therapeutic procedure [Unknown]
  - Transient ischaemic attack [Unknown]
  - Gout [Unknown]
  - Hypertension [Unknown]
  - Microalbuminuria [Unknown]
  - Urinary retention [Unknown]
  - Haematuria [Recovering/Resolving]
  - Pedal pulse decreased [Unknown]
  - Urinary bladder haemorrhage [Unknown]
  - Depression [Unknown]
  - Iris injury [Unknown]
  - Prostate cancer [Not Recovered/Not Resolved]
  - Carotid artery stenosis [Unknown]
  - Erectile dysfunction [Unknown]

NARRATIVE: CASE EVENT DATE: 2004
